FAERS Safety Report 8575445-9 (Version None)
Quarter: 2012Q3

REPORT INFORMATION
  Report Type: 
  Country: None (occurrence: None)
  Receive Date: 20120807
  Receipt Date: 20120731
  Transmission Date: 20120928
  Serious: Yes (Hospitalization)
  Sender: FDA-Public Use
  Company Number: PHHY2012FR067135

PATIENT
  Sex: Female
  Weight: 78 kg

DRUGS (1)
  1. INTERFERON BETA-1B [Suspect]
     Indication: MULTIPLE SCLEROSIS
     Dosage: 1 ML, DAILY
     Route: 058
     Dates: start: 20120401

REACTIONS (3)
  - DYSAESTHESIA [None]
  - LHERMITTE'S SIGN [None]
  - ANAESTHESIA [None]
